FAERS Safety Report 9869164 (Version 2)
Quarter: 2014Q1

REPORT INFORMATION
  Report Type: Spontaneous
  Country: HR (occurrence: HR)
  Receive Date: 20140205
  Receipt Date: 20140227
  Transmission Date: 20141002
  Serious: Yes (Life-Threatening, Other)
  Sender: FDA-Public Use
  Company Number: HR-AMGEN-HRVSP2014007807

PATIENT
  Age: 42 Year
  Sex: Female

DRUGS (4)
  1. ENBREL [Suspect]
     Indication: ANKYLOSING SPONDYLITIS
     Dosage: 50 MG, UNK
     Route: 058
  2. LEKADOL [Concomitant]
     Dosage: 500 MG, 2X/DAY
  3. RANITAL                            /00550801/ [Concomitant]
     Dosage: 150 MG, 1X/DAY
  4. DORETA [Concomitant]
     Dosage: UNK UNK, AS NECESSARY

REACTIONS (3)
  - Osteochondroma [Not Recovered/Not Resolved]
  - Gastrointestinal disorder [Unknown]
  - Diarrhoea [Unknown]
